FAERS Safety Report 5310367-8 (Version None)
Quarter: 2007Q2

REPORT INFORMATION
  Report Type: 
  Country: None (occurrence: None)
  Receive Date: 20070427
  Receipt Date: 20070418
  Transmission Date: 20071010
  Serious: Yes (Hospitalization, Other)
  Sender: FDA-Public Use
  Company Number: US-PFIZER INC-2007007197

PATIENT
  Sex: Female
  Weight: 78 kg

DRUGS (13)
  1. SINEQUAN [Suspect]
  2. ZOLOFT [Suspect]
     Dosage: TEXT:UNKNOWN
  3. CHANTIX [Suspect]
     Indication: SMOKING CESSATION THERAPY
  4. SYNTHROID [Concomitant]
     Dosage: DAILY DOSE:.5MG
  5. SINGULAIR [Concomitant]
     Dosage: DAILY DOSE:10MG
  6. NEXIUM [Concomitant]
     Dosage: DAILY DOSE:40MG
  7. TEGRETOL [Concomitant]
     Dosage: DAILY DOSE:100MG
  8. ALLEGRA [Concomitant]
     Dosage: DAILY DOSE:180MG
  9. PERCOCET [Concomitant]
     Dosage: FREQ:AS NEEDED
  10. ALDACTONE [Concomitant]
     Dosage: DAILY DOSE:50MG
  11. LASIX [Concomitant]
     Dosage: DAILY DOSE:40MG
  12. LIDODERM [Concomitant]
     Route: 062
  13. LACTULOSE [Concomitant]

REACTIONS (19)
  - AORTIC STENOSIS [None]
  - ATTENTION DEFICIT/HYPERACTIVITY DISORDER [None]
  - CARDIAC FAILURE CONGESTIVE [None]
  - CHRONIC OBSTRUCTIVE PULMONARY DISEASE [None]
  - DRUG INEFFECTIVE [None]
  - DYSPNOEA [None]
  - EMOTIONAL DISORDER [None]
  - EXTRASYSTOLES [None]
  - HIATUS HERNIA [None]
  - HYPERTENSION [None]
  - HYPOTHYROIDISM [None]
  - INFLAMMATION [None]
  - INTERVERTEBRAL DISC DISORDER [None]
  - NAUSEA [None]
  - NERVOUSNESS [None]
  - PALPITATIONS [None]
  - PNEUMOTHORAX [None]
  - SMOKER [None]
  - SOMNOLENCE [None]
